FAERS Safety Report 11801523 (Version 1)
Quarter: 2015Q4

REPORT INFORMATION
  Report Type: Spontaneous
  Country: US (occurrence: None)
  Receive Date: 20151203
  Receipt Date: 20151203
  Transmission Date: 20160305
  Serious: Yes (Other)
  Sender: FDA-Public Use
  Company Number: None

PATIENT
  Age: 67 Year
  Sex: Male
  Weight: 81.65 kg

DRUGS (1)
  1. CRESTOR [Suspect]
     Active Substance: ROSUVASTATIN CALCIUM
     Indication: BLOOD CHOLESTEROL
     Dosage: ONCE A DAY
     Route: 048
     Dates: start: 20150211, end: 20150211

REACTIONS (4)
  - Drug effect decreased [None]
  - Joint stiffness [None]
  - Fatigue [None]
  - Tremor [None]

NARRATIVE: CASE EVENT DATE: 20150311
